FAERS Safety Report 6386125-2 (Version None)
Quarter: 2009Q4

REPORT INFORMATION
  Report Type: 
  Country: None (occurrence: None)
  Receive Date: 20091002
  Receipt Date: 20090106
  Transmission Date: 20100525
  Serious: No
  Sender: FDA-Public Use
  Company Number: US-ASTRAZENECA-2008UW27056

PATIENT
  Age: 82 Year
  Sex: Female
  Weight: 61.2 kg

DRUGS (9)
  1. ARIMIDEX [Suspect]
     Indication: BREAST CANCER
     Route: 048
     Dates: start: 20081001, end: 20081127
  2. COREG [Concomitant]
  3. LASIX [Concomitant]
  4. DILANTIN [Concomitant]
  5. PLAVIX [Concomitant]
  6. ALTACE [Concomitant]
  7. ZOCOR [Concomitant]
  8. SYNTHROID [Concomitant]
  9. ASPIRIN [Concomitant]

REACTIONS (3)
  - DEPRESSION [None]
  - MOOD ALTERED [None]
  - TOOTH FRACTURE [None]
